FAERS Safety Report 8037174-X (Version None)
Quarter: 2012Q1

REPORT INFORMATION
  Report Type: 
  Country: None (occurrence: None)
  Receive Date: 20120106
  Receipt Date: 20111202
  Transmission Date: 20120608
  Serious: Yes (Hospitalization, Other)
  Sender: FDA-Public Use
  Company Number: DSU-2011-09053

PATIENT
  Age: 57 Year
  Sex: Male
  Weight: 97.5234 kg

DRUGS (3)
  1. BENICAR HCT [Suspect]
     Indication: HYPERTENSION
     Dosage: 20/12.5 MG, QD, PER ORAL
     Route: 048
     Dates: end: 20111001
  2. LOVASTATIN [Concomitant]
  3. BENICAR [Suspect]
     Indication: HYPERTENSION
     Dosage: 20 MG (20 MG, QD)PER ORAL
     Route: 048
     Dates: start: 20111018, end: 20111104

REACTIONS (15)
  - INSOMNIA [None]
  - FATIGUE [None]
  - NAUSEA [None]
  - THROMBOSIS [None]
  - PULMONARY THROMBOSIS [None]
  - SPEECH DISORDER [None]
  - DYSGRAPHIA [None]
  - WEIGHT DECREASED [None]
  - OEDEMA PERIPHERAL [None]
  - INFLUENZA LIKE ILLNESS [None]
  - COUGH [None]
  - GAIT DISTURBANCE [None]
  - ANGIOEDEMA [None]
  - VOMITING [None]
  - READING DISORDER [None]
